FAERS Safety Report 8464914-8 (Version None)
Quarter: 2012Q2

REPORT INFORMATION
  Report Type: 
  Country: None (occurrence: None)
  Receive Date: 20120626
  Receipt Date: 20120622
  Transmission Date: 20120825
  Serious: Yes (Death, Other)
  Sender: FDA-Public Use
  Company Number: AR-ASTRAZENECA-2012SE42035

PATIENT
  Age: 37 Year
  Sex: Female

DRUGS (8)
  1. MEROPENEM [Interacting]
     Indication: BACTERIAL INFECTION
     Route: 042
  2. LEVETIRACETAM [Concomitant]
     Route: 042
  3. VANCOMYCIN [Interacting]
     Indication: BACTERIAL INFECTION
     Route: 042
  4. MIDAZOLAM [Concomitant]
     Indication: STATUS EPILEPTICUS
     Route: 042
  5. VALPROIC ACID [Concomitant]
     Indication: STATUS EPILEPTICUS
     Route: 042
  6. CEFTAZIDIME [Suspect]
     Route: 042
  7. PHENYTOIN [Concomitant]
     Indication: GRAND MAL CONVULSION
     Route: 042
  8. DIAZEPAM [Concomitant]
     Indication: GRAND MAL CONVULSION
     Route: 042

REACTIONS (3)
  - INHIBITORY DRUG INTERACTION [None]
  - STATUS EPILEPTICUS [None]
  - SEPSIS [None]
